FAERS Safety Report 4587831-2 (Version None)
Quarter: 2005Q1

REPORT INFORMATION
  Report Type: 
  Country: None (occurrence: None)
  Receive Date: 20050125
  Receipt Date: 20041004
  Transmission Date: 20050727
  Serious: No
  Sender: FDA-Public Use
  Company Number: USA040977185

PATIENT
  Age: 78 Year
  Sex: Female
  Weight: 60 kg

DRUGS (5)
  1. FORTEO [Suspect]
     Indication: INTERVERTEBRAL DISC COMPRESSION
     Dosage: 20 UG/1 DAY
     Dates: start: 20040920
  2. FORTEO [Suspect]
     Indication: OSTEOPOROSIS
     Dosage: 20 UG/1 DAY
     Dates: start: 20040920
  3. SYNTHROID [Concomitant]
  4. CALCIUM GLUCONATE [Concomitant]
  5. MULTIVITAMINS NOS (MULTIVITAMINS NOS) [Concomitant]

REACTIONS (7)
  - ASTHENIA [None]
  - CHEST WALL PAIN [None]
  - DIZZINESS [None]
  - FEELING ABNORMAL [None]
  - HEAD DISCOMFORT [None]
  - NERVOUSNESS [None]
  - STOMACH DISCOMFORT [None]
